FAERS Safety Report 9145795 (Version 1)
Quarter: 2013Q1

REPORT INFORMATION
  Report Type: Spontaneous
  Country: US (occurrence: None)
  Receive Date: 20130227
  Receipt Date: 20130227
  Transmission Date: 20140127
  Serious: Yes (Life-Threatening, Hospitalization, Disabling)
  Sender: FDA-Public Use
  Company Number: None

PATIENT
  Sex: Male
  Weight: 158.76 kg

DRUGS (2)
  1. VENLAFAXINE [Suspect]
     Indication: ANTIDEPRESSANT THERAPY
     Dosage: 1 TABLET TWICE A DAY
     Dates: start: 20111101, end: 20120627
  2. BUPROPION [Suspect]
     Dosage: 1 TABLET TWICE A DAY
     Dates: start: 20120501, end: 20120627

REACTIONS (2)
  - Pancreatitis [None]
  - Pseudocyst [None]
